FAERS Safety Report 5080959-2 (Version None)
Quarter: 2006Q3

REPORT INFORMATION
  Report Type: 
  Country: None (occurrence: None)
  Receive Date: 20060810
  Receipt Date: 20060726
  Transmission Date: 20061208
  Serious: Yes (Hospitalization)
  Sender: FDA-Public Use
  Company Number: PAR_0720_2006

PATIENT
  Age: 45 Year
  Sex: Male

DRUGS (2)
  1. IBUPROFEN [Suspect]
     Indication: PAIN MANAGEMENT
     Dosage: 400  MG  VARIABLE
  2. PARACETAMOL WITH CODEINE PHOSPHATE [Concomitant]

REACTIONS (19)
  - BLOOD PARATHYROID HORMONE DECREASED [None]
  - CONDITION AGGRAVATED [None]
  - HAEMODIALYSIS [None]
  - HYPERCALCAEMIA [None]
  - LETHARGY [None]
  - MULTIPLE MYELOMA [None]
  - NEPHRITIS INTERSTITIAL [None]
  - NEPHROCALCINOSIS [None]
  - NEPHROPATHY [None]
  - PAIN [None]
  - POLLAKIURIA [None]
  - PYREXIA [None]
  - PYURIA [None]
  - RENAL FAILURE ACUTE [None]
  - SPINAL COMPRESSION FRACTURE [None]
  - THIRST [None]
  - THORACIC VERTEBRAL FRACTURE [None]
  - VASOCONSTRICTION [None]
  - WEIGHT DECREASED [None]
